FAERS Safety Report 9639361 (Version 1)
Quarter: 2013Q4

REPORT INFORMATION
  Report Type: Spontaneous
  Country: CH (occurrence: CH)
  Receive Date: 20131022
  Receipt Date: 20131022
  Transmission Date: 20140711
  Serious: Yes (Other)
  Sender: FDA-Public Use
  Company Number: CH-B.I. PHARMACEUTICALS,INC./RIDGEFIELD-2013-BI-32127SI

PATIENT
  Age: 35 Year
  Sex: Female
  Weight: 137 kg

DRUGS (4)
  1. MICARDIS [Suspect]
     Indication: ESSENTIAL HYPERTENSION
     Route: 064
     Dates: start: 2012
  2. ZANIDIP [Suspect]
     Indication: ESSENTIAL HYPERTENSION
     Route: 064
     Dates: start: 2012
  3. EUTHYROX [Concomitant]
     Indication: HYPOTHYROIDISM
     Dates: start: 2012
  4. FOLIC ACID [Concomitant]
     Dates: start: 2012

REACTIONS (1)
  - Exposure during pregnancy [Recovered/Resolved]
